FAERS Safety Report 4275107-2 (Version None)
Quarter: 2004Q1

REPORT INFORMATION
  Report Type: 
  Country: None (occurrence: None)
  Receive Date: 20040116
  Receipt Date: 20040105
  Transmission Date: 20041129
  Serious: Yes (Other)
  Sender: FDA-Public Use
  Company Number: 2004001001

PATIENT
  Age: 42 Year
  Sex: Female

DRUGS (11)
  1. CYCLOKAPRON (TRANEXAMIC ACID) [Suspect]
     Dosage: UNSPECIFIED, UNKNOWN
     Route: 065
  2. ECHINACEA (ECHINACEA) [Suspect]
     Dosage: UNSPECIFIED; ORAL
     Route: 048
  3. CODEINE PHOSPHATE (CODEINE PHOSPHATE) [Suspect]
     Dosage: UNSPECIFIED, UNKNOWN
     Route: 065
  4. NIFEDIPINE [Suspect]
     Dosage: UNSPECIFIED, UNKNOWN
     Route: 065
  5. BENDROFLUMETHIAZIDE (BENDROFLUMETHIAZIDE) [Suspect]
     Dosage: UNSPECIFIED, UNKNOWN
     Route: 065
  6. BECLOMETHASONE DIPROPIONATE [Suspect]
     Dosage: UNSPECIFIED, UNKNOWN
     Route: 065
  7. DICLOFENAC SODIUM [Suspect]
     Dosage: UNSPECIFIED, UNKNOWN
     Route: 065
  8. DOTHIEPIN HYDROCHLORIDE [Suspect]
     Dosage: UNSPECIFIED, UNKNOWN
     Route: 065
  9. DOXAPRAM (DOXAPRAM) [Suspect]
     Dosage: UNSPECIFIED, UNKNOWN
     Route: 065
  10. FERROUS SULFATE TAB [Suspect]
     Dosage: UNSPECIFIED, UNKNOWN
     Route: 065
  11. SALBUTAMOL (SALBUTAMOL) [Suspect]
     Dosage: UNSPECIFIED, UNKNOWN
     Route: 065

REACTIONS (2)
  - COAGULOPATHY [None]
  - DRUG INTERACTION [None]
